FAERS Safety Report 18269348 (Version 1)
Quarter: 2020Q3

REPORT INFORMATION
  Report Type: Spontaneous
  Country: FR (occurrence: FR)
  Receive Date: 20200915
  Receipt Date: 20200915
  Transmission Date: 20201103
  Serious: Yes (Other)
  Sender: FDA-Public Use
  Company Number: FR-JAZZ-2020-FR-007493

PATIENT

DRUGS (1)
  1. KIDROLASE [Suspect]
     Active Substance: ASPARAGINASE
     Indication: T-CELL TYPE ACUTE LEUKAEMIA
     Dosage: ACCORDING TO THE GRAAL 2013 PROTOCOL
     Route: 065

REACTIONS (1)
  - Drug hypersensitivity [Unknown]
